FAERS Safety Report 7906025-3 (Version None)
Quarter: 2011Q4

REPORT INFORMATION
  Report Type: 
  Country: None (occurrence: None)
  Receive Date: 20111110
  Receipt Date: 20111104
  Transmission Date: 20120403
  Serious: Yes (Hospitalization)
  Sender: FDA-Public Use
  Company Number: FR-BRISTOL-MYERS SQUIBB COMPANY-16203663

PATIENT
  Age: 74 Year
  Sex: Female

DRUGS (5)
  1. IRBESARTAN [Suspect]
     Indication: HYPERTENSION
     Dosage: 1DF=1 TABS
     Route: 048
  2. LORAZEPAM [Concomitant]
     Dosage: SCORED TABLET (LORAZEPAM) ONE SCORED TABLET.
     Route: 048
  3. ATORVASTATIN CALCIUM [Suspect]
     Indication: HYPERCHOLESTEROLAEMIA
     Dosage: ONE FILM-COATED TABLET.
     Route: 048
     Dates: end: 20110907
  4. DIAMICRON [Concomitant]
     Indication: DIABETES MELLITUS
     Dosage: MODIFIED-RELEASE TABLET (GLICLAZIDE) ONE MODIFIED-RELEASE TABLET.
     Dates: end: 20110912
  5. GLEEVEC [Suspect]
     Indication: CHRONIC LYMPHOCYTIC LEUKAEMIA
     Dosage: ONE FILM-COATED TABLET DAILY.MID-JULY, GLIVEC WAS STOPPED.
     Route: 048
     Dates: start: 20110203, end: 20110701

REACTIONS (4)
  - CYTOLYTIC HEPATITIS [None]
  - PROTHROMBIN TIME RATIO DECREASED [None]
  - ASPARTATE AMINOTRANSFERASE INCREASED [None]
  - ALANINE AMINOTRANSFERASE INCREASED [None]
